FAERS Safety Report 15227272 (Version 11)
Quarter: 2019Q4

REPORT INFORMATION
  Report Type: Report from Study
  Country: AT (occurrence: AT)
  Receive Date: 20180801
  Receipt Date: 20191122
  Transmission Date: 20200122
  Serious: Yes (Hospitalization, Other)
  Sender: FDA-Public Use
  Company Number: AT-INCYTE CORPORATION-2018IN007625

PATIENT

DRUGS (13)
  1. JAKAVI [Suspect]
     Active Substance: RUXOLITINIB
     Dosage: 7.5 OT
     Route: 065
     Dates: start: 20190522, end: 20190714
  2. CIPRALEX [Concomitant]
     Active Substance: ESCITALOPRAM OXALATE
     Indication: DEPRESSION
     Dosage: 10 OT, UNK
     Route: 065
     Dates: start: 20101013
  3. JAKAVI [Suspect]
     Active Substance: RUXOLITINIB
     Indication: POLYCYTHAEMIA VERA
     Dosage: 10 MG, BID
     Route: 065
     Dates: start: 20171218, end: 20180103
  4. THROMBO ASS [Concomitant]
     Active Substance: ASPIRIN
     Indication: THROMBOSIS PROPHYLAXIS
     Dosage: 100 MG, UNK
     Route: 065
     Dates: start: 20010910
  5. ASPIRIN. [Concomitant]
     Active Substance: ASPIRIN
     Indication: PRODUCT USED FOR UNKNOWN INDICATION
     Dosage: UNK
     Route: 065
  6. JAKAVI [Suspect]
     Active Substance: RUXOLITINIB
     Dosage: 15 MG, UNK
     Route: 048
     Dates: start: 20180104, end: 20180130
  7. JAKAVI [Suspect]
     Active Substance: RUXOLITINIB
     Dosage: 10 MG, UNK
     Route: 048
     Dates: start: 20180131, end: 20180807
  8. JAKAVI [Suspect]
     Active Substance: RUXOLITINIB
     Dosage: 3.2 OT
     Route: 065
     Dates: start: 20190801, end: 20190804
  9. BLOPRESS [Concomitant]
     Active Substance: CANDESARTAN CILEXETIL
     Indication: HYPERTENSION
     Dosage: 16 OT, UNK
     Route: 065
     Dates: start: 20150320, end: 20190725
  10. JAKAVI [Suspect]
     Active Substance: RUXOLITINIB
     Dosage: 10 OT, UNK
     Route: 048
     Dates: start: 20180808
  11. JAKAVI [Suspect]
     Active Substance: RUXOLITINIB
     Dosage: 10 OT, UNK
     Route: 048
     Dates: start: 20190130, end: 20190310
  12. JAKAVI [Suspect]
     Active Substance: RUXOLITINIB
     Dosage: 5 OT
     Route: 065
     Dates: start: 20190805
  13. PANTOPRAZOL [Concomitant]
     Active Substance: PANTOPRAZOLE SODIUM
     Indication: PROPHYLAXIS
     Dosage: 20 OT, UNK
     Route: 065
     Dates: start: 20170913

REACTIONS (24)
  - Diarrhoea [Recovered/Resolved]
  - Liver function test abnormal [Unknown]
  - Sciatica [Unknown]
  - Swelling [Unknown]
  - Peripheral vascular disorder [Not Recovered/Not Resolved]
  - Dyspnoea exertional [Not Recovered/Not Resolved]
  - Hyperhidrosis [Not Recovered/Not Resolved]
  - General physical health deterioration [Not Recovered/Not Resolved]
  - Pruritus [Not Recovered/Not Resolved]
  - Haematoma [Not Recovered/Not Resolved]
  - Cardiovascular insufficiency [Not Recovered/Not Resolved]
  - Spinal pain [Unknown]
  - Paraesthesia [Not Recovered/Not Resolved]
  - Activated partial thromboplastin time prolonged [Unknown]
  - Acute myeloid leukaemia [Not Recovered/Not Resolved]
  - Back pain [Recovered/Resolved]
  - Haematoma muscle [Recovered/Resolved]
  - White blood cell count increased [Unknown]
  - Blood urea increased [Unknown]
  - Haemoglobin decreased [Unknown]
  - Pharyngitis [Recovered/Resolved]
  - Blood creatinine increased [Unknown]
  - Pruritus [Recovered/Resolved]
  - Muscle swelling [Unknown]

NARRATIVE: CASE EVENT DATE: 20180709
